FAERS Safety Report 5176457-8 (Version None)
Quarter: 2006Q4

REPORT INFORMATION
  Report Type: 
  Country: None (occurrence: None)
  Receive Date: 20061207
  Receipt Date: 20061129
  Transmission Date: 20070319
  Serious: Yes (Other)
  Sender: FDA-Public Use
  Company Number: 2006147440

PATIENT
  Sex: Female

DRUGS (1)
  1. ACTIFED JOUR ET NUIT (DIPHENHYDRAMINE, PARACETAMOL, PSEUDOEPHEDRINE) [Suspect]
     Dosage: UNSPECIFIED, ORAL
     Route: 048

REACTIONS (1)
  - ASTHMA [None]
